FAERS Safety Report 4895507-7 (Version None)
Quarter: 2006Q1

REPORT INFORMATION
  Report Type: 
  Country: None (occurrence: None)
  Receive Date: 20060125
  Receipt Date: 20060117
  Transmission Date: 20060701
  Serious: Yes (Hospitalization, Other)
  Sender: FDA-Public Use
  Company Number: 2005113780

PATIENT
  Sex: Female

DRUGS (10)
  1. CELEBREX [Suspect]
     Indication: CHEST PAIN
     Dosage: 200 MG (200MG, 1 IN 1 D), UNKNOWN
     Dates: start: 20011105, end: 20020101
  2. CELEBREX [Suspect]
     Indication: MUSCLE SPASTICITY
     Dosage: 200 MG (200MG, 1 IN 1 D), UNKNOWN
     Dates: start: 20011105, end: 20020101
  3. METOPROLOL (METOPROLOL) [Concomitant]
  4. NORTRIPTYLINE HCL [Concomitant]
  5. CLONZAEPAM (CLONAZEPAM) [Concomitant]
  6. PROPOXYPHENE HCL AND ACETAMINOPHEN (DEXTROPROPOXYPHENE HYDROCHLORIDE, [Concomitant]
  7. PROTONIX [Concomitant]
  8. HYDROCODONE BITARTRATE + ACETAMINOPHEN [Concomitant]
  9. HEMORID FOR WOMAN SUPPOSITORIES (PHENYLEPHRINE HYDROCHLORIDE, ZINC OXI [Concomitant]
  10. DARVOCET [Concomitant]

REACTIONS (19)
  - AORTIC VALVE SCLEROSIS [None]
  - ARRHYTHMIA SUPRAVENTRICULAR [None]
  - DEEP VEIN THROMBOSIS [None]
  - FIBRIN D DIMER INCREASED [None]
  - HAEMATEMESIS [None]
  - MITRAL VALVE CALCIFICATION [None]
  - MITRAL VALVE INCOMPETENCE [None]
  - MYOCARDIAL INFARCTION [None]
  - MYOCARDIAL ISCHAEMIA [None]
  - PULMONARY EMBOLISM [None]
  - RECTAL HAEMORRHAGE [None]
  - SINUS ARRHYTHMIA [None]
  - SUPRAVENTRICULAR EXTRASYSTOLES [None]
  - THROMBOSIS [None]
  - TRANSIENT ISCHAEMIC ATTACK [None]
  - TRICUSPID VALVE INCOMPETENCE [None]
  - UPPER GASTROINTESTINAL HAEMORRHAGE [None]
  - VARICES OESOPHAGEAL [None]
  - VENOUS THROMBOSIS [None]
